FAERS Safety Report 16339801 (Version 2)
Quarter: 2019Q2

REPORT INFORMATION
  Report Type: Report from Study
  Country: US (occurrence: US)
  Receive Date: 20190521
  Receipt Date: 20190627
  Transmission Date: 20190711
  Serious: Yes (Hospitalization)
  Sender: FDA-Public Use
  Company Number: US-ACTELION-A-US2019-190600

PATIENT
  Sex: Male

DRUGS (6)
  1. LEVAQUIN [Concomitant]
     Active Substance: LEVOFLOXACIN
  2. UPTRAVI [Suspect]
     Active Substance: SELEXIPAG
     Indication: PULMONARY ARTERIAL HYPERTENSION
     Dosage: 400 MCG, BID
     Route: 048
     Dates: start: 20190222
  3. INSULIN [Concomitant]
     Active Substance: INSULIN NOS
  4. UPTRAVI [Suspect]
     Active Substance: SELEXIPAG
     Dosage: UNK
     Route: 048
  5. LASIX [Concomitant]
     Active Substance: FUROSEMIDE
  6. ASPIRIN. [Concomitant]
     Active Substance: ASPIRIN

REACTIONS (8)
  - Visual impairment [Unknown]
  - Pneumonia [Unknown]
  - Blood glucose increased [Unknown]
  - Sinusitis [Unknown]
  - Diabetes mellitus [Unknown]
  - Eye pain [Unknown]
  - Chest pain [Recovered/Resolved]
  - Subdural haematoma [Unknown]
